FAERS Safety Report 4907364-0 (Version None)
Quarter: 2006Q1

REPORT INFORMATION
  Report Type: 
  Country: None (occurrence: None)
  Receive Date: 20060208
  Receipt Date: 20060208
  Transmission Date: 20060701
  Serious: Yes (Life-Threatening, Hospitalization)
  Sender: FDA-Public Use
  Company Number: None

PATIENT
  Age: 48 Year
  Sex: Male
  Weight: 85 kg

DRUGS (13)
  1. GLIPIZIDE [Suspect]
     Indication: DIABETES MELLITUS
     Dates: start: 20031124, end: 20051207
  2. ELAVIL [Concomitant]
  3. CHLORFENAMINE [Concomitant]
  4. CYCLOBENZAPRINE HCL [Concomitant]
  5. FLUNISOLIDE [Concomitant]
  6. FOSINOPRIL SODIUM [Concomitant]
  7. GLIPIZIDE [Concomitant]
  8. HYDROCHLOROTHIAZIDE [Concomitant]
  9. OMEPRAZOLE [Concomitant]
  10. METHOCELLYLOSE [Concomitant]
  11. PERCOCET [Concomitant]
  12. SIMETHACONE [Concomitant]
  13. SIMVASTATIN [Concomitant]

REACTIONS (1)
  - HYPOGLYCAEMIA [None]
